FAERS Safety Report 4620209-1 (Version None)
Quarter: 2005Q1

REPORT INFORMATION
  Report Type: 
  Country: None (occurrence: None)
  Receive Date: 20050324
  Receipt Date: 20050315
  Transmission Date: 20050727
  Serious: Yes (Disabling)
  Sender: FDA-Public Use
  Company Number: CIP05000627

PATIENT
  Age: 64 Year
  Sex: Female

DRUGS (4)
  1. RISEDRONATE SODIUM [Suspect]
     Indication: OSTEOPOROSIS PROPHYLAXIS
     Dosage: 2.5 MG DAILY, ORAL
     Route: 048
     Dates: start: 20040917, end: 20040927
  2. ROCALTROL [Concomitant]
  3. ASPIRIN [Concomitant]
  4. LOCHOL (FLUVASTATIN SODIUM) [Concomitant]

REACTIONS (1)
  - VISUAL ACUITY REDUCED [None]
